FAERS Safety Report 12052753 (Version 1)
Quarter: 2016Q1

REPORT INFORMATION
  Report Type: Spontaneous
  Country: FI (occurrence: FI)
  Receive Date: 20160209
  Receipt Date: 20160209
  Transmission Date: 20160526
  Serious: Yes (Hospitalization, Other)
  Sender: FDA-Public Use
  Company Number: FI-GLAXOSMITHKLINE-FI2016GSK016128

PATIENT
  Sex: Male

DRUGS (13)
  1. ANORO ELLIPTA [Suspect]
     Active Substance: UMECLIDINIUM BROMIDE\VILANTEROL TRIFENATATE
     Indication: CHRONIC OBSTRUCTIVE PULMONARY DISEASE
     Dosage: 1 DF, UNK
     Route: 055
     Dates: start: 20151203, end: 20160114
  2. CERIDAL LIPOLOTION [Concomitant]
     Dosage: UNK
     Route: 061
  3. ZOMIG [Concomitant]
     Active Substance: ZOLMITRIPTAN
     Dosage: 5 MG, PRN
  4. CARDACE [Concomitant]
     Active Substance: RAMIPRIL
     Dosage: 2.5 MG, 1D
     Route: 048
  5. FELODIPIN ACTAVIS [Concomitant]
     Dosage: UNK
     Route: 048
  6. ELOCON [Concomitant]
     Active Substance: MOMETASONE FUROATE
     Dosage: UNK
     Route: 061
  7. MAREVAN [Concomitant]
     Active Substance: WARFARIN SODIUM
     Dosage: 3 MG, UNK
     Route: 048
  8. FURESIS [Concomitant]
     Active Substance: FUROSEMIDE
     Dosage: 10 MG/ML, PRN
  9. XATRAL CR [Concomitant]
     Dosage: 10 MG, 1D
     Route: 048
  10. ATRODUAL [Concomitant]
     Dosage: 1 DF, PRN
  11. ORLOC [Concomitant]
     Active Substance: BISOPROLOL FUMARATE
     Dosage: 10 MG, 1D
  12. FURESIS [Concomitant]
     Active Substance: FUROSEMIDE
     Dosage: 40 MG, BID
     Route: 048
  13. TETRALYSAL [Concomitant]
     Active Substance: LYMECYCLINE
     Dosage: 300 MG, UNK

REACTIONS (4)
  - Seborrhoeic dermatitis [Unknown]
  - Palpitations [Recovering/Resolving]
  - Dyspnoea [Recovering/Resolving]
  - Cardiac fibrillation [Unknown]
